FAERS Safety Report 25031753 (Version 1)
Quarter: 2025Q1

REPORT INFORMATION
  Report Type: Spontaneous
  Country: US (occurrence: None)
  Receive Date: 20250301
  Receipt Date: 20250301
  Transmission Date: 20250409
  Serious: Yes (Disabling)
  Sender: FDA-CTU
  Company Number: None

PATIENT
  Age: 26 Year
  Sex: Female
  Weight: 65.7 kg

DRUGS (1)
  1. PAXIL [Suspect]
     Active Substance: PAROXETINE HYDROCHLORIDE

REACTIONS (17)
  - Sexual dysfunction [None]
  - Disturbance in sexual arousal [None]
  - Inadequate lubrication [None]
  - Pain [None]
  - Genital pain [None]
  - Hypoaesthesia [None]
  - Autonomic neuropathy [None]
  - Hair growth rate abnormal [None]
  - Nonspecific reaction [None]
  - Peripheral vascular disorder [None]
  - Sensory disturbance [None]
  - Therapeutic product effect decreased [None]
  - Sexual dysfunction [None]
  - Autonomic nervous system imbalance [None]
  - Small fibre neuropathy [None]
  - Nervous system disorder [None]
  - Angiopathy [None]

NARRATIVE: CASE EVENT DATE: 20211201
